FAERS Safety Report 13324390 (Version 1)
Quarter: 2017Q1

REPORT INFORMATION
  Report Type: Spontaneous
  Country: CN (occurrence: CN)
  Receive Date: 20170310
  Receipt Date: 20170310
  Transmission Date: 20170428
  Serious: Yes (Hospitalization, Other)
  Sender: FDA-Public Use
  Company Number: CN-PFIZER INC-2017100021

PATIENT
  Age: 57 Year
  Sex: Male
  Weight: 70 kg

DRUGS (3)
  1. TIENAM [Suspect]
     Active Substance: CILASTATIN SODIUM\IMIPENEM
     Indication: INTESTINAL PERFORATION
     Dosage: 2 G, 1X/DAY
     Route: 041
     Dates: start: 20170104, end: 20170111
  2. DIFLUCAN [Suspect]
     Active Substance: FLUCONAZOLE
     Indication: INTESTINAL PERFORATION
     Dosage: 400 MG, 1X/DAY
     Route: 041
     Dates: start: 20170106, end: 20170111
  3. SODIUM CHLORIDE. [Concomitant]
     Active Substance: SODIUM CHLORIDE
     Dosage: UNK

REACTIONS (1)
  - Epilepsy [Recovered/Resolved]

NARRATIVE: CASE EVENT DATE: 20170111
